FAERS Safety Report 15950673 (Version 1)
Quarter: 2019Q1

REPORT INFORMATION
  Report Type: Spontaneous
  Country: CA (occurrence: CA)
  Receive Date: 20190211
  Receipt Date: 20190211
  Transmission Date: 20190417
  Serious: Yes (Other)
  Sender: FDA-Public Use
  Company Number: CA-INDIVIOR LIMITED-INDV-117588-2019

PATIENT
  Sex: Female
  Weight: 72.57 kg

DRUGS (1)
  1. BUPRENORPHINE/NALOXONE [Suspect]
     Active Substance: BUPRENORPHINE\NALOXONE
     Indication: DRUG DEPENDENCE
     Dosage: 12 MILLIGRAM, UNK
     Route: 060

REACTIONS (2)
  - Drug withdrawal syndrome [Unknown]
  - Product substitution issue [Unknown]
